FAERS Safety Report 19666604 (Version 4)
Quarter: 2021Q4

REPORT INFORMATION
  Report Type: Report from Study
  Country: US (occurrence: US)
  Receive Date: 20210806
  Receipt Date: 20211229
  Transmission Date: 20220303
  Serious: No
  Sender: FDA-Public Use
  Company Number: NVSC2021US173545

PATIENT
  Sex: Male

DRUGS (1)
  1. COSENTYX [Suspect]
     Active Substance: SECUKINUMAB
     Indication: Psoriasis
     Dosage: 300 MG (TAKEN ONE TIME)
     Route: 058

REACTIONS (3)
  - SARS-CoV-2 test positive [Unknown]
  - Rash [Unknown]
  - Therapeutic product effect incomplete [Unknown]
